FAERS Safety Report 4821468-2 (Version None)
Quarter: 2005Q4

REPORT INFORMATION
  Report Type: 
  Country: None (occurrence: None)
  Receive Date: 20051107
  Receipt Date: 20051026
  Transmission Date: 20060501
  Serious: Yes (Other)
  Sender: FDA-Public Use
  Company Number: PHBS2005JP16004

PATIENT

DRUGS (1)
  1. VOLTAREN [Suspect]
     Indication: BACK PAIN
     Route: 048

REACTIONS (1)
  - FACIAL PALSY [None]
